FAERS Safety Report 21118921 (Version 1)
Quarter: 2022Q3

REPORT INFORMATION
  Report Type: Spontaneous
  Country: US (occurrence: None)
  Receive Date: 20220721
  Receipt Date: 20220721
  Transmission Date: 20221027
  Serious: Yes (Other)
  Sender: FDA-Public Use
  Company Number: None

PATIENT
  Age: 76 Year
  Sex: Female

DRUGS (3)
  1. MOLNUPIRAVIR [Suspect]
     Active Substance: MOLNUPIRAVIR
     Indication: COVID-19
     Dates: start: 20220717, end: 20220719
  2. AZITHROMYCIN [Concomitant]
     Active Substance: AZITHROMYCIN
     Dates: start: 20220717
  3. ONDANSETRON [Concomitant]
     Active Substance: ONDANSETRON
     Dates: start: 20220717

REACTIONS (7)
  - Muscular weakness [None]
  - Myalgia [None]
  - Arthralgia [None]
  - Feeling cold [None]
  - Erythema [None]
  - Sensory disturbance [None]
  - Swollen tongue [None]

NARRATIVE: CASE EVENT DATE: 20220719
